FAERS Safety Report 12654548 (Version 1)
Quarter: 2016Q3

REPORT INFORMATION
  Report Type: Spontaneous
  Country: US (occurrence: None)
  Receive Date: 20160815
  Receipt Date: 20160815
  Transmission Date: 20161109
  Serious: Yes (Other)
  Sender: FDA-Public Use
  Company Number: None

PATIENT
  Age: 42 Year
  Sex: Female
  Weight: 62.14 kg

DRUGS (2)
  1. PHENTERMINE 37.5 MG TABLET, 37.5 MG KVK-TECH [Suspect]
     Active Substance: PHENTERMINE
     Dosage: PHENTERMINE ?1 TABLET IN THE MORNING?TAKEN BY MOUTH
     Route: 048
     Dates: start: 20160809, end: 20160813
  2. YASMINE BIRTH CONTROL PILLS [Concomitant]

REACTIONS (8)
  - Feeling abnormal [None]
  - Product substitution issue [None]
  - Disorientation [None]
  - Paraesthesia [None]
  - Influenza like illness [None]
  - Impaired work ability [None]
  - Lethargy [None]
  - Activities of daily living impaired [None]

NARRATIVE: CASE EVENT DATE: 20160810
